FAERS Safety Report 4907212-9 (Version None)
Quarter: 2006Q1

REPORT INFORMATION
  Report Type: 
  Country: None (occurrence: None)
  Receive Date: 20060207
  Receipt Date: 20060120
  Transmission Date: 20060701
  Serious: Yes (Hospitalization)
  Sender: FDA-Public Use
  Company Number: US200601003687

PATIENT
  Sex: Male

DRUGS (3)
  1. FORTEO [Suspect]
  2. FORTEO PEN (FORTEO PEN) PEN DISPOSABLE [Concomitant]
  3. PEN, DISPOSABLE [Concomitant]

REACTIONS (1)
  - VERTEBROPLASTY [None]
